FAERS Safety Report 10812149 (Version 1)
Quarter: 2015Q1

REPORT INFORMATION
  Report Type: Spontaneous
  Country: US (occurrence: None)
  Receive Date: 20150212
  Receipt Date: 20150212
  Transmission Date: 20150721
  Serious: No
  Sender: FDA-Public Use
  Company Number: None

PATIENT
  Age: 53 Year
  Sex: Male
  Weight: 71.67 kg

DRUGS (2)
  1. SIMVASTATIN. [Suspect]
     Active Substance: SIMVASTATIN
     Indication: BLOOD CHOLESTEROL INCREASED
     Dosage: 1
     Route: 048
     Dates: start: 20141212
  2. SIMVASTATIN. [Suspect]
     Active Substance: SIMVASTATIN
     Indication: BLOOD TRIGLYCERIDES INCREASED
     Dosage: 1
     Route: 048
     Dates: start: 20141212

REACTIONS (21)
  - Disturbance in attention [None]
  - Irritability [None]
  - Job dissatisfaction [None]
  - Aggression [None]
  - Chromaturia [None]
  - Depression [None]
  - Urine abnormality [None]
  - Condition aggravated [None]
  - Nightmare [None]
  - Suicidal ideation [None]
  - Emotional disorder [None]
  - Middle insomnia [None]
  - Insomnia [None]
  - Vision blurred [None]
  - Social avoidant behaviour [None]
  - Urine odour abnormal [None]
  - Back pain [None]
  - Dyspepsia [None]
  - Decreased interest [None]
  - Negative thoughts [None]
  - Hyperacusis [None]

NARRATIVE: CASE EVENT DATE: 20150115
